FAERS Safety Report 10032995 (Version 1)
Quarter: 2014Q1

REPORT INFORMATION
  Report Type: Spontaneous
  Country: KR (occurrence: KR)
  Receive Date: 20140324
  Receipt Date: 20140324
  Transmission Date: 20141002
  Serious: Yes (Other)
  Sender: FDA-Public Use
  Company Number: KR-PFIZER INC-2014077104

PATIENT
  Sex: Male

DRUGS (6)
  1. CARDURA [Suspect]
     Indication: URINARY RETENTION
     Dosage: UNK, AT NIGHT
     Route: 048
  2. CARDURA [Suspect]
     Indication: POLLAKIURIA
  3. AVODART [Concomitant]
     Indication: URINARY RETENTION
     Dosage: UNK
     Route: 048
  4. AVODART [Concomitant]
     Indication: POLLAKIURIA
  5. TAMSWEL [Concomitant]
     Indication: URINARY RETENTION
     Dosage: UNK
     Route: 048
  6. TAMSWEL [Concomitant]
     Indication: POLLAKIURIA

REACTIONS (2)
  - Dysuria [Unknown]
  - Micturition urgency [Unknown]
